FAERS Safety Report 17682680 (Version 5)
Quarter: 2021Q1

REPORT INFORMATION
  Report Type: Report from Study
  Country: CA (occurrence: CA)
  Receive Date: 20200419
  Receipt Date: 20210320
  Transmission Date: 20210419
  Serious: Yes (Hospitalization)
  Sender: FDA-Public Use
  Company Number: PHHY2018CA034011

PATIENT
  Age: 59 Year
  Sex: Female

DRUGS (3)
  1. SANDOSTATIN LAR DEPOT [Suspect]
     Active Substance: OCTREOTIDE ACETATE
     Indication: NEUROENDOCRINE TUMOUR
     Dosage: 30 MG, QMO (EVERY FOUR WEEKS)
     Route: 030
     Dates: start: 20140601
  2. SANDOSTATIN LAR DEPOT [Suspect]
     Active Substance: OCTREOTIDE ACETATE
     Indication: CARCINOID TUMOUR
     Dosage: 30 MG, QMO (EVERY FOUR WEEKS)
     Route: 030
     Dates: start: 20181211
  3. SANDOSTATIN LAR DEPOT [Suspect]
     Active Substance: OCTREOTIDE ACETATE
     Dosage: UNK
     Route: 030
     Dates: start: 20190205

REACTIONS (17)
  - Depressed mood [Unknown]
  - Diarrhoea [Not Recovered/Not Resolved]
  - Allergy to chemicals [Unknown]
  - Head injury [Unknown]
  - Malaise [Unknown]
  - Flushing [Recovering/Resolving]
  - Fall [Unknown]
  - Concussion [Recovering/Resolving]
  - Headache [Unknown]
  - Therapeutic response shortened [Recovering/Resolving]
  - Movement disorder [Unknown]
  - Blood glucose increased [Unknown]
  - Dehydration [Unknown]
  - Fatigue [Recovering/Resolving]
  - Lacrimation increased [Unknown]
  - Depression [Unknown]
  - Heart rate increased [Unknown]

NARRATIVE: CASE EVENT DATE: 20180625
